FAERS Safety Report 5595695-3 (Version None)
Quarter: 2008Q1

REPORT INFORMATION
  Report Type: 
  Country: None (occurrence: None)
  Receive Date: 20080118
  Receipt Date: 20080109
  Transmission Date: 20080703
  Serious: Yes (Hospitalization, Other)
  Sender: FDA-Public Use
  Company Number: US-AMGEN-QUU260079

PATIENT
  Sex: Female

DRUGS (3)
  1. ENBREL [Suspect]
     Indication: PSORIATIC ARTHROPATHY
     Route: 058
     Dates: start: 20000101
  2. ENBREL [Suspect]
     Indication: PSORIASIS
  3. NEURONTIN [Concomitant]

REACTIONS (6)
  - ARTHRALGIA [None]
  - OVARIAN CYST [None]
  - POSTOPERATIVE WOUND INFECTION [None]
  - PSORIASIS [None]
  - SCIATICA [None]
  - WEIGHT INCREASED [None]
